FAERS Safety Report 17279309 (Version 1)
Quarter: 2020Q1

REPORT INFORMATION
  Report Type: Spontaneous
  Country: FR (occurrence: FR)
  Receive Date: 20200116
  Receipt Date: 20200116
  Transmission Date: 20200409
  Serious: Yes (Life-Threatening, Hospitalization, Disabling)
  Sender: FDA-Public Use
  Company Number: FR-PFIZER INC-2020019980

PATIENT
  Age: 50 Year
  Sex: Female
  Weight: 117 kg

DRUGS (3)
  1. PERJETA [Suspect]
     Active Substance: PERTUZUMAB
     Indication: BREAST CANCER
     Dosage: 1 UNK, CYCLIC
     Route: 042
     Dates: start: 20190328, end: 20190627
  2. DOCETAXEL. [Suspect]
     Active Substance: DOCETAXEL
     Indication: BREAST CANCER
     Dosage: 1 UNK, CYCLIC
     Route: 042
     Dates: start: 20190329, end: 20190718
  3. HERZUMA [Suspect]
     Active Substance: TRASTUZUMAB-PKRB
     Indication: BREAST CANCER
     Dosage: 1 UNK, CYCLIC
     Route: 042
     Dates: start: 20190329, end: 20190627

REACTIONS (1)
  - Cardiac failure [Not Recovered/Not Resolved]

NARRATIVE: CASE EVENT DATE: 20190713
